FAERS Safety Report 24222044 (Version 1)
Quarter: 2024Q3

REPORT INFORMATION
  Report Type: Spontaneous
  Country: IN (occurrence: IN)
  Receive Date: 20240819
  Receipt Date: 20240819
  Transmission Date: 20241016
  Serious: Yes (Other)
  Sender: ROCHE
  Company Number: IN-ROCHE-10000058069

PATIENT
  Age: 36 Year
  Sex: Male

DRUGS (4)
  1. TRASTUZUMAB [Suspect]
     Active Substance: TRASTUZUMAB
     Indication: Gallbladder adenocarcinoma
     Route: 065
  2. DURVALUMAB [Concomitant]
     Active Substance: DURVALUMAB
     Dates: start: 202309
  3. CISPLATIN [Concomitant]
     Active Substance: CISPLATIN
     Dates: start: 202309
  4. GEMCITABINE [Concomitant]
     Active Substance: GEMCITABINE
     Dates: start: 202309

REACTIONS (1)
  - Venoocclusive disease [Unknown]
